FAERS Safety Report 6344767-4 (Version None)
Quarter: 2009Q3

REPORT INFORMATION
  Report Type: 
  Country: None (occurrence: None)
  Receive Date: 20090904
  Receipt Date: 20090831
  Transmission Date: 20100115
  Serious: Yes (Other)
  Sender: FDA-Public Use
  Company Number: TRP_06401_2009

PATIENT
  Sex: Male

DRUGS (2)
  1. RIBAVIRIN [Suspect]
     Indication: HEPATITIS C
     Dosage: (1200 MG, DAILY)
     Dates: start: 20081015
  2. PEGASYS [Suspect]
     Indication: HEPATITIS C
     Dosage: (180 ?G 1X/WEEK)
     Dates: start: 20081015

REACTIONS (5)
  - AGITATION [None]
  - MEMORY IMPAIRMENT [None]
  - SLEEP APNOEA SYNDROME [None]
  - TREMOR [None]
  - WEIGHT DECREASED [None]
